FAERS Safety Report 23140887 (Version 1)
Quarter: 2023Q4

REPORT INFORMATION
  Report Type: Spontaneous
  Country: US (occurrence: US)
  Receive Date: 20231103
  Receipt Date: 20231103
  Transmission Date: 20240109
  Serious: No
  Sender: FDA-Public Use
  Company Number: US-MARIUS PHARMACEUTICALS-2023US003802

PATIENT

DRUGS (1)
  1. KYZATREX [Suspect]
     Active Substance: TESTOSTERONE UNDECANOATE
     Indication: Product used for unknown indication

REACTIONS (1)
  - Liver function test increased [Recovered/Resolved]
